FAERS Safety Report 12565914 (Version 7)
Quarter: 2017Q1

REPORT INFORMATION
  Report Type: Spontaneous
  Country: US (occurrence: US)
  Receive Date: 20160718
  Receipt Date: 20170214
  Transmission Date: 20170428
  Serious: Yes (Congenital Anomaly, Other)
  Sender: FDA-Public Use
  Company Number: PHEH2016US017489

PATIENT
  Sex: Female

DRUGS (3)
  1. ZOFRAN [Suspect]
     Active Substance: ONDANSETRON HYDROCHLORIDE
     Indication: FOETAL EXPOSURE DURING PREGNANCY
     Route: 064
  2. ZOFRAN ODT [Suspect]
     Active Substance: ONDANSETRON HYDROCHLORIDE
     Indication: FOETAL EXPOSURE DURING PREGNANCY
     Dosage: MOTHER DOSE: 04 MG, PRN
     Route: 064
  3. ONDANSETRON. [Suspect]
     Active Substance: ONDANSETRON
     Indication: FOETAL EXPOSURE DURING PREGNANCY
     Dosage: MOTHER DOSE: 04 MG, AS NEEDED (PRN)
     Route: 064

REACTIONS (22)
  - Craniofacial deformity [Unknown]
  - Pain [Unknown]
  - Upper respiratory tract infection [Unknown]
  - Otorrhoea [Unknown]
  - Dyspnoea [Unknown]
  - Cleft lip and palate [Unknown]
  - Enamel anomaly [Unknown]
  - Hypoacusis [Unknown]
  - Constipation [Unknown]
  - Injury [Unknown]
  - Cough [Unknown]
  - Congenital nose malformation [Unknown]
  - Otitis media chronic [Unknown]
  - Choking [Unknown]
  - Foetal exposure during pregnancy [Unknown]
  - Poor weight gain neonatal [Unknown]
  - Muscle disorder [Unknown]
  - Decreased appetite [Unknown]
  - Congenital anomaly [Unknown]
  - Haemorrhoids [Unknown]
  - Eczema [Unknown]
  - Eustachian tube dysfunction [Unknown]
